FAERS Safety Report 8599115 (Version 3)
Quarter: 2014Q1

REPORT INFORMATION
  Report Type: Spontaneous
  Country: US (occurrence: US)
  Receive Date: 20120605
  Receipt Date: 20140130
  Transmission Date: 20141002
  Serious: Yes (Disabling, Other)
  Sender: FDA-Public Use
  Company Number: US-ASTRAZENECA-2012SE34924

PATIENT
  Age: 55 Year
  Sex: Female

DRUGS (2)
  1. NEXIUM [Suspect]
     Indication: GASTROOESOPHAGEAL REFLUX DISEASE
     Route: 048
     Dates: end: 2012
  2. PREVACID [Concomitant]
     Indication: ULCER

REACTIONS (9)
  - Pelvic fracture [Unknown]
  - Fall [Unknown]
  - Patella fracture [Unknown]
  - Diabetes mellitus [Unknown]
  - Renal disorder [Unknown]
  - Cardiac disorder [Unknown]
  - Osteoporosis [Unknown]
  - Wrist fracture [Unknown]
  - Lower limb fracture [Unknown]
